FAERS Safety Report 5097688-1 (Version None)
Quarter: 2006Q3

REPORT INFORMATION
  Report Type: 
  Country: None (occurrence: None)
  Receive Date: 20060901
  Receipt Date: 20051003
  Transmission Date: 20061208
  Serious: Yes (Hospitalization, Other)
  Sender: FDA-Public Use
  Company Number: 2005BH002206

PATIENT
  Age: 69 Year
  Sex: Male
  Weight: 68.4 kg

DRUGS (12)
  1. EXTRANEAL [Suspect]
     Indication: RENAL FAILURE CHRONIC
     Dosage: 2000 ML; EVERY DAY; IP; SEE IMAGE
     Route: 033
     Dates: start: 20040616, end: 20050506
  2. EXTRANEAL [Suspect]
     Indication: RENAL FAILURE CHRONIC
     Dosage: 2000 ML; EVERY DAY; IP; SEE IMAGE
     Route: 033
     Dates: start: 20050614
  3. DIANEAL [Concomitant]
  4. MEXILETINE HYDROCHLORIDE [Concomitant]
  5. FUROSEMIDE [Concomitant]
  6. ATENOLOL [Concomitant]
  7. VALSARTAN [Concomitant]
  8. ZOLPIDEM TARTRATE [Concomitant]
  9. SENNOSIDE A [Concomitant]
  10. ISOSORBIDE DINITRATE [Concomitant]
  11. FAMOTIDINE [Concomitant]
  12. ASPIRIN [Concomitant]

REACTIONS (1)
  - INGUINAL HERNIA [None]
